FAERS Safety Report 8616198-5 (Version None)
Quarter: 2012Q3

REPORT INFORMATION
  Report Type: 
  Country: None (occurrence: None)
  Receive Date: 20120823
  Receipt Date: 20120815
  Transmission Date: 20120928
  Serious: Yes (Hospitalization, Other)
  Sender: FDA-Public Use
  Company Number: US-009507513-1110USA00792

PATIENT

DRUGS (4)
  1. FOSAMAX [Suspect]
     Dosage: 70 MG, QD
     Route: 048
     Dates: end: 20100201
  2. FOSAMAX PLUS D [Suspect]
     Indication: OSTEOPOROSIS
     Dosage: 70 MG, QW
     Route: 048
     Dates: start: 20051010
  3. FOSAMAX [Suspect]
     Dosage: 70 MG, QW
     Route: 048
     Dates: start: 20100214
  4. FOSAMAX [Suspect]
     Indication: OSTEOPOROSIS
     Dosage: 70 MG, QW
     Route: 048
     Dates: start: 20010701, end: 20051001

REACTIONS (61)
  - COMPRESSION FRACTURE [None]
  - INTRANEURAL CYST [None]
  - INTERNAL FIXATION OF FRACTURE [None]
  - CEREBRAL ARTERY OCCLUSION [None]
  - MAMMARY DUCT ECTASIA [None]
  - TIBIA FRACTURE [None]
  - CARDIAC DISORDER [None]
  - KYPHOSIS [None]
  - HYPOCALCIURIA [None]
  - DIZZINESS [None]
  - SINUSITIS [None]
  - ARTERIOSCLEROSIS [None]
  - INAPPROPRIATE SCHEDULE OF DRUG ADMINISTRATION [None]
  - OVERDOSE [None]
  - ANKLE FRACTURE [None]
  - DEVICE FAILURE [None]
  - ARTHRITIS [None]
  - OSTEOARTHRITIS [None]
  - BONE DISORDER [None]
  - PULMONARY CONGESTION [None]
  - MEDICAL DEVICE DISCOMFORT [None]
  - GALLBLADDER DISORDER [None]
  - INTERVERTEBRAL DISC DEGENERATION [None]
  - TRANSFUSION [None]
  - CYSTOCELE [None]
  - HYPERTENSION [None]
  - BREAST HYPERPLASIA [None]
  - CEREBRAL INFARCTION [None]
  - FALL [None]
  - HAND FRACTURE [None]
  - BREAST LUMP REMOVAL [None]
  - NAUSEA [None]
  - CARDIOMEGALY [None]
  - SCOLIOSIS [None]
  - SPINAL COLUMN STENOSIS [None]
  - THORACIC VERTEBRAL FRACTURE [None]
  - BREAST MASS [None]
  - OSTEOPOROSIS [None]
  - BREAST CANCER [None]
  - CARDIAC FAILURE CONGESTIVE [None]
  - FRACTURE DELAYED UNION [None]
  - HYPERKALAEMIA [None]
  - HYPOTHYROIDISM [None]
  - BACK DISORDER [None]
  - FIBULA FRACTURE [None]
  - EMPHYSEMA [None]
  - BIOPSY BREAST [None]
  - BREAST CALCIFICATIONS [None]
  - BREAST FIBROSIS [None]
  - FEMUR FRACTURE [None]
  - RENAL FAILURE CHRONIC [None]
  - VITAMIN D DEFICIENCY [None]
  - HYPERCHOLESTEROLAEMIA [None]
  - TENDONITIS [None]
  - ROTATOR CUFF SYNDROME [None]
  - ANAEMIA POSTOPERATIVE [None]
  - BLOOD CALCIUM DECREASED [None]
  - OPEN REDUCTION OF FRACTURE [None]
  - COLPORRHAPHY [None]
  - MEDICAL DEVICE REMOVAL [None]
  - METAPLASIA [None]
